FAERS Safety Report 10997499 (Version 1)
Quarter: 2015Q2

REPORT INFORMATION
  Report Type: Spontaneous
  Country: US (occurrence: None)
  Receive Date: 20150407
  Receipt Date: 20150407
  Transmission Date: 20150821
  Serious: Yes (Life-Threatening, Other)
  Sender: FDA-Public Use
  Company Number: None

PATIENT
  Age: 17 Year
  Sex: Female
  Weight: 56.7 kg

DRUGS (2)
  1. CORICIDIN HBP COUGH AND COLD [Suspect]
     Active Substance: CHLORPHENIRAMINE MALEATE\DEXTROMETHORPHAN HYDROBROMIDE
     Indication: DRUG DEPENDENCE
     Route: 048
     Dates: start: 201501, end: 201503
  2. DELSYM [Suspect]
     Active Substance: DEXTROMETHORPHAN

REACTIONS (2)
  - Drug abuse [None]
  - Overdose [None]

NARRATIVE: CASE EVENT DATE: 201501
